FAERS Safety Report 12993654 (Version 1)
Quarter: 2016Q4

REPORT INFORMATION
  Report Type: Spontaneous
  Country: US (occurrence: US)
  Receive Date: 20161201
  Receipt Date: 20161201
  Transmission Date: 20170207
  Serious: Yes (Other)
  Sender: FDA-Public Use
  Company Number: None

PATIENT
  Age: 54 Year
  Sex: Male
  Weight: 60.33 kg

DRUGS (1)
  1. GENERIC IMATINIB [Suspect]
     Active Substance: IMATINIB
     Indication: CHRONIC MYELOID LEUKAEMIA
     Route: 048
     Dates: start: 20161002, end: 20161006

REACTIONS (5)
  - Mood altered [None]
  - Diarrhoea [None]
  - Product substitution issue [None]
  - Depression [None]
  - Pain in extremity [None]

NARRATIVE: CASE EVENT DATE: 20161006
